FAERS Safety Report 11526405 (Version 1)
Quarter: 2015Q3

REPORT INFORMATION
  Report Type: Spontaneous
  Country: US (occurrence: US)
  Receive Date: 20150903
  Receipt Date: 20150903
  Transmission Date: 20151125
  Serious: No
  Sender: FDA-Public Use
  Company Number: US-ELI_LILLY_AND_COMPANY-US201308010018

PATIENT
  Age: 63 Year
  Sex: Female

DRUGS (3)
  1. CYMBALTA [Suspect]
     Active Substance: DULOXETINE HYDROCHLORIDE
     Dosage: 20 MG, QD
     Dates: start: 20130828
  2. CYMBALTA [Suspect]
     Active Substance: DULOXETINE HYDROCHLORIDE
     Indication: PAIN
     Dosage: UNK, UNKNOWN
  3. HUMIRA [Suspect]
     Active Substance: ADALIMUMAB

REACTIONS (8)
  - Rheumatoid arthritis [Unknown]
  - Chapped lips [Unknown]
  - Osteoarthritis [Unknown]
  - Lip blister [Not Recovered/Not Resolved]
  - Dry skin [Unknown]
  - Depression [Not Recovered/Not Resolved]
  - Hypersensitivity [Unknown]
  - Lip blister [Unknown]

NARRATIVE: CASE EVENT DATE: 20130829
